FAERS Safety Report 9173277 (Version 1)
Quarter: 2013Q1

REPORT INFORMATION
  Report Type: Spontaneous
  Country: DE (occurrence: DE)
  Receive Date: 20130320
  Receipt Date: 20130320
  Transmission Date: 20140127
  Serious: Yes (Hospitalization, Other)
  Sender: FDA-Public Use
  Company Number: DE-AMGEN-DEUSP2013016842

PATIENT
  Sex: Male

DRUGS (1)
  1. XGEVA [Suspect]
     Indication: PRODUCT USED FOR UNKNOWN INDICATION
     Dosage: UNK
     Dates: start: 20121010

REACTIONS (10)
  - Hospitalisation [Unknown]
  - Convulsion [Unknown]
  - Hypokalaemia [Unknown]
  - Calcium deficiency [Unknown]
  - Dizziness [Unknown]
  - Decreased appetite [Unknown]
  - Confusional state [Unknown]
  - Somnolence [Unknown]
  - Fatigue [Unknown]
  - Headache [Unknown]
